FAERS Safety Report 23079134 (Version 1)
Quarter: 2023Q4

REPORT INFORMATION
  Report Type: Spontaneous
  Country: CN (occurrence: CN)
  Receive Date: 20231018
  Receipt Date: 20231018
  Transmission Date: 20240110
  Serious: Yes (Other)
  Sender: FDA-Public Use
  Company Number: CN-PFIZER INC-PV202300169279

PATIENT
  Age: 48 Year
  Sex: Male
  Weight: 60 kg

DRUGS (1)
  1. DACOMITINIB [Suspect]
     Active Substance: DACOMITINIB
     Indication: Lung neoplasm malignant
     Dosage: 45 MG, 1X/DAY
     Route: 048
     Dates: start: 20230402, end: 20230929

REACTIONS (5)
  - Blood creatine phosphokinase increased [Recovering/Resolving]
  - Asthenia [Unknown]
  - Nausea [Unknown]
  - Vomiting [Unknown]
  - Decreased appetite [Unknown]

NARRATIVE: CASE EVENT DATE: 20231001
